FAERS Safety Report 5123007-8 (Version None)
Quarter: 2006Q4

REPORT INFORMATION
  Report Type: 
  Country: None (occurrence: None)
  Receive Date: 20061009
  Receipt Date: 20060302
  Transmission Date: 20070319
  Serious: Yes (Death, Hospitalization)
  Sender: FDA-Public Use
  Company Number: US-NOVOPROD-251308

PATIENT
  Age: 13 Day
  Sex: Female
  Weight: 3 kg

DRUGS (12)
  1. NOVOSEVEN [Suspect]
     Indication: COAGULOPATHY
     Dosage: 250 UG, SINGLE
     Route: 042
     Dates: start: 20060102, end: 20060102
  2. NOVOSEVEN [Suspect]
     Dosage: 250 UG TWO DOSES ADMINISTERED
     Route: 042
     Dates: start: 20060103, end: 20060103
  3. NOVOSEVEN [Suspect]
     Dosage: 240 UG FIVE DOSES ADMINISTERED
     Route: 042
     Dates: start: 20060101, end: 20060101
  4. CLAFORAN [Concomitant]
     Indication: HERPES SIMPLEX
     Dates: start: 20060101, end: 20060105
  5. ACYCLOVIR [Concomitant]
     Indication: HERPES SIMPLEX
     Dates: start: 20060101, end: 20060105
  6. AMPICILLIN SODIUM [Concomitant]
     Indication: HERPES SIMPLEX
     Dates: start: 20060101, end: 20060105
  7. MORPHINE [Concomitant]
     Indication: PAIN
     Dates: start: 20060101, end: 20060105
  8. BLOOD CELLS, PACKED HUMAN [Concomitant]
     Indication: HAEMORRHAGE
     Dosage: 160 ML, UNK
     Route: 042
  9. FRESH FROZEN PLASMA [Concomitant]
     Indication: HAEMORRHAGE
     Dosage: 99 ML, UNK
     Route: 042
  10. SODIUM BICARBONATE [Concomitant]
     Indication: METABOLIC ACIDOSIS
     Dosage: UNK, UNK
     Route: 042
  11. KRIOPRECIPITAT [Concomitant]
     Indication: HAEMORRHAGE
  12. PLATELETS [Concomitant]
     Indication: HAEMORRHAGE

REACTIONS (8)
  - ACTIVATED PARTIAL THROMBOPLASTIN TIME PROLONGED [None]
  - CONCOMITANT DISEASE PROGRESSION [None]
  - CONGENITAL HERPES SIMPLEX INFECTION [None]
  - HERPES SEPSIS [None]
  - HYPERGLYCAEMIA [None]
  - PROTHROMBIN TIME PROLONGED [None]
  - RHABDOMYOLYSIS [None]
  - THERAPEUTIC RESPONSE DECREASED [None]
